FAERS Safety Report 23707341 (Version 3)
Quarter: 2024Q2

REPORT INFORMATION
  Report Type: Report from Study
  Country: RO (occurrence: RO)
  Receive Date: 20240404
  Receipt Date: 20240611
  Transmission Date: 20240716
  Serious: Yes (Hospitalization)
  Sender: FDA-Public Use
  Company Number: RO-ABBVIE-5703039

PATIENT
  Age: 71 Year
  Sex: Female

DRUGS (3)
  1. CARBIDOPA\LEVODOPA [Suspect]
     Active Substance: CARBIDOPA\LEVODOPA
     Indication: Parkinson^s disease
     Dosage: DM=10.00 DC=4.60 ED=2.20 NRED=2; DMN=0.00 DCN=2.20 EDN=2.20 NREDN=1
     Route: 050
     Dates: start: 20130118, end: 20240430
  2. CARBIDOPA\LEVODOPA [Suspect]
     Active Substance: CARBIDOPA\LEVODOPA
     Dosage: DM=12.00 DC=4.50 ED=1.40 NRED=0; DMN=0.00 DCN=0.00 EDN=0.00 NREDN=0
     Route: 050
     Dates: end: 20240605
  3. BENSERAZIDE HYDROCHLORIDE\LEVODOPA [Concomitant]
     Active Substance: BENSERAZIDE HYDROCHLORIDE\LEVODOPA
     Indication: Parkinson^s disease
     Dosage: 200MG/50MG, 1 TABLET X 5 TIMES/DAY, ORALLY
     Route: 048

REACTIONS (6)
  - Therapeutic response shortened [Recovering/Resolving]
  - Oromandibular dystonia [Recovering/Resolving]
  - Device dislocation [Unknown]
  - Fall [Recovered/Resolved]
  - Dystonia [Unknown]
  - On and off phenomenon [Unknown]

NARRATIVE: CASE EVENT DATE: 20240401
